FAERS Safety Report 10189054 (Version 1)
Quarter: 2014Q2

REPORT INFORMATION
  Report Type: Spontaneous
  Country: JP (occurrence: JP)
  Receive Date: 20140522
  Receipt Date: 20140522
  Transmission Date: 20141212
  Serious: Yes (Other)
  Sender: FDA-Public Use
  Company Number: JP-ASTRAZENECA-2014SE34653

PATIENT
  Age: 63 Year
  Sex: Male

DRUGS (2)
  1. ZOLADEX [Suspect]
     Indication: PROSTATE CANCER
     Route: 058
  2. RADIOTHERAPY [Concomitant]
     Indication: PROSTATE CANCER

REACTIONS (2)
  - Malignant neoplasm progression [Unknown]
  - Blood testosterone increased [Unknown]
